FAERS Safety Report 7845884-X (Version None)
Quarter: 2011Q4

REPORT INFORMATION
  Report Type: 
  Country: None (occurrence: None)
  Receive Date: 20111025
  Receipt Date: 20111019
  Transmission Date: 20120403
  Serious: Yes (Other)
  Sender: FDA-Public Use
  Company Number: US-ABBOTT-11P-163-0707117-00

PATIENT
  Sex: Female
  Weight: 99.88 kg

DRUGS (14)
  1. HUMIRA [Suspect]
     Indication: PSORIASIS
     Dates: start: 20090101
  2. SYNTHROID [Concomitant]
     Indication: THYROIDECTOMY
  3. FORTAMET [Concomitant]
     Indication: DIABETES MELLITUS
  4. SIMVASTATIN [Concomitant]
     Indication: BLOOD CHOLESTEROL INCREASED
  5. SYNTHROID [Concomitant]
     Indication: AUTOIMMUNE THYROIDITIS
  6. ASPIRIN [Concomitant]
     Indication: PROPHYLAXIS
  7. FLONASE [Concomitant]
     Indication: HYPERSENSITIVITY
     Route: 045
  8. TACLONEX [Concomitant]
     Indication: PSORIASIS
  9. CLOBETASOL PROPIONATE [Concomitant]
     Indication: PSORIASIS
  10. ZYRTEC [Concomitant]
     Indication: HYPERSENSITIVITY
  11. SYNTHROID [Concomitant]
     Indication: HYPOTHYROIDISM
  12. PROVENTIL [Concomitant]
     Indication: SEASONAL ALLERGY
  13. VITAMIN D [Concomitant]
     Indication: VITAMIN SUPPLEMENTATION
  14. TRILIPIX [Concomitant]
     Indication: BLOOD CHOLESTEROL INCREASED

REACTIONS (8)
  - THROMBOSIS [None]
  - VOMITING [None]
  - COUGH [None]
  - MENORRHAGIA [None]
  - INJECTION SITE PAIN [None]
  - INFLUENZA LIKE ILLNESS [None]
  - HEADACHE [None]
  - WHEEZING [None]
